FAERS Safety Report 6265481-X (Version None)
Quarter: 2009Q3

REPORT INFORMATION
  Report Type: 
  Country: None (occurrence: None)
  Receive Date: 20090713
  Receipt Date: 20090706
  Transmission Date: 20100115
  Serious: Yes (Death)
  Sender: FDA-Public Use
  Company Number: PHHY2009BR27552

PATIENT
  Sex: Male

DRUGS (2)
  1. TEGRETOL [Suspect]
     Indication: CONVULSION
     Dosage: 1 DF, BID
     Route: 048
     Dates: start: 20090201
  2. DRUG THERAPY NOS [Concomitant]
     Dosage: UNK
     Dates: start: 20090301

REACTIONS (1)
  - CONVULSION [None]
